FAERS Safety Report 9864524 (Version 1)
Quarter: 2014Q1

REPORT INFORMATION
  Report Type: Spontaneous
  Country: US (occurrence: US)
  Receive Date: 20140203
  Receipt Date: 20140203
  Transmission Date: 20141002
  Serious: No
  Sender: FDA-Public Use
  Company Number: US-AMGEN-USASP2014000602

PATIENT
  Age: 65 Year
  Sex: Female

DRUGS (3)
  1. ENBREL [Suspect]
     Indication: RHEUMATOID ARTHRITIS
     Dosage: 50 MG, QWK
     Route: 065
     Dates: start: 20130827, end: 20131224
  2. METHOTREXATE [Concomitant]
     Dosage: 2.5 MG, 3 TABLET,EVERY 5 DAYS
     Route: 048
     Dates: start: 2011
  3. PLAQUENIL                          /00072602/ [Concomitant]
     Dosage: 200 MG, QD, 3 TABLET
     Dates: start: 2011

REACTIONS (1)
  - Muscular weakness [Not Recovered/Not Resolved]
